FAERS Safety Report 8293736-6 (Version None)
Quarter: 2012Q2

REPORT INFORMATION
  Report Type: 
  Country: None (occurrence: None)
  Receive Date: 20120413
  Receipt Date: 20120403
  Transmission Date: 20120825
  Serious: Yes (Other)
  Sender: FDA-Public Use
  Company Number: 2012-032881

PATIENT
  Age: 50 Year
  Sex: Female
  Weight: 90.7 kg

DRUGS (2)
  1. UNCODEABLE ^UNCLASSIFIABLE^ (UNCODEABLE ^UNCLASSIFIABLE^) [Concomitant]
  2. BAYER EXTRA STRENGTH PM (ACETYLSALICYLIC ACID + DIPHENHYDRAMINE) COATE [Suspect]
     Indication: PAIN
     Dosage: 1 DF, ONCE, ORAL
     Route: 048
     Dates: start: 20120402, end: 20120402

REACTIONS (4)
  - URTICARIA [None]
  - EYE SWELLING [None]
  - HYPERSENSITIVITY [None]
  - LIP SWELLING [None]
